FAERS Safety Report 8381789 (Version 2)
Quarter: 2014Q3

REPORT INFORMATION
  Report Type: Spontaneous
  Country: US (occurrence: US)
  Receive Date: 20120201
  Receipt Date: 20140811
  Transmission Date: 20150326
  Serious: No
  Sender: FDA-Public Use
  Company Number: US-PFIZER INC-2012022925

PATIENT
  Age: 83 Year
  Sex: Male
  Weight: 122.45 kg

DRUGS (3)
  1. LYRICA [Suspect]
     Active Substance: PREGABALIN
     Dosage: 50 MG, 3X/DAY
     Route: 048
     Dates: start: 2012, end: 2012
  2. LYRICA [Suspect]
     Active Substance: PREGABALIN
     Indication: NEUROPATHY PERIPHERAL
     Dosage: 75 MG, 2X/DAY
     Dates: start: 201112, end: 20120124
  3. LYRICA [Suspect]
     Active Substance: PREGABALIN
     Dosage: 50 MG, 2X/DAY (ONCE IN MORNING AND ONCE AT NIGHT)
     Route: 048
     Dates: start: 2012, end: 2012

REACTIONS (7)
  - Agitation [Recovered/Resolved]
  - Vision blurred [Recovered/Resolved]
  - Disturbance in attention [Recovered/Resolved]
  - Tinnitus [Unknown]
  - Pain in extremity [Unknown]
  - Insomnia [Unknown]
  - Dizziness [Recovered/Resolved]

NARRATIVE: CASE EVENT DATE: 2012
